FAERS Safety Report 8213315-6 (Version None)
Quarter: 2012Q1

REPORT INFORMATION
  Report Type: 
  Country: None (occurrence: None)
  Receive Date: 20120315
  Receipt Date: 20120310
  Transmission Date: 20120608
  Serious: Yes (Other)
  Sender: FDA-Public Use
  Company Number: PHHY2012MX021672

PATIENT
  Sex: Female

DRUGS (5)
  1. ONBREZ [Suspect]
     Indication: CHRONIC OBSTRUCTIVE PULMONARY DISEASE
     Dosage: 150 UG, QD
     Dates: start: 20111101
  2. UMCKALOABO [Concomitant]
  3. LEXOTAN [Concomitant]
  4. OMNARIS [Concomitant]
  5. ADEKON [Concomitant]

REACTIONS (3)
  - BRONCHOPNEUMONIA [None]
  - BLOOD TRIGLYCERIDES INCREASED [None]
  - BLOOD CHOLESTEROL INCREASED [None]
